FAERS Safety Report 16121329 (Version 4)
Quarter: 2023Q4

REPORT INFORMATION
  Report Type: Spontaneous
  Country: IT (occurrence: IT)
  Receive Date: 20190327
  Receipt Date: 20231218
  Transmission Date: 20240110
  Serious: Yes (Other)
  Sender: FDA-Public Use
  Company Number: None

PATIENT
  Age: 40 Year
  Sex: Female
  Weight: 70 kg

DRUGS (15)
  1. LEVETIRACETAM [Suspect]
     Active Substance: LEVETIRACETAM
     Indication: Generalised tonic-clonic seizure
     Route: 048
  2. LAMOTRIGINE [Interacting]
     Active Substance: LAMOTRIGINE
     Indication: Partial seizures
     Dosage: 350 MG, QD, ALSO TAKEN 450 MG(450 MG, QD)
  3. ESTRADIOL [Interacting]
     Active Substance: ESTRADIOL
     Indication: Assisted reproductive technology
     Dosage: 4 MG, FOR 10 DAYS
  4. KEPPRA [Suspect]
     Active Substance: LEVETIRACETAM
     Indication: Epilepsy
     Dosage: 1000 MG, TID
     Route: 048
     Dates: start: 20110418
  5. ETHINYL ESTRADIOL [Suspect]
     Active Substance: ETHINYL ESTRADIOL
     Indication: Hormone therapy
     Dosage: 0.075 MG, UNK (SCHEDULED TO BE ADMINISTERED FOR 28 DAYS; RECEIVED DURING IN VITRO FERTILIZATION)
     Route: 065
  6. CETRORELIX ACETATE [Suspect]
     Active Substance: CETRORELIX ACETATE
     Indication: Hypothalamo-pituitary disorder
     Dosage: 0.25 MG, UNK (FOR 8 DAYS, RECEIVED DURING IN VITRO FERTILIZATION))
     Route: 065
  7. FOLLITROPIN BETA [Suspect]
     Active Substance: FOLLITROPIN BETA
     Indication: In vitro fertilisation
     Dosage: 300 IU, UNK ( (SCHEDULED TO BE ADMINISTERED FOR 8 DAYS; RECEIVED DURING IN VITRO FERTILIZATION FRO)
     Route: 030
     Dates: start: 20120517, end: 20120524
  8. GESTODENE [Suspect]
     Active Substance: GESTODENE
     Indication: In vitro fertilisation
     Dosage: 0.03 MG, UNK (SCHEDULED TO BE ADMINISTERED FOR 28 DAYS; RECEIVED DURING IN VITRO FERTILIZATION)
     Route: 065
  9. CLOBAZAM [Concomitant]
     Active Substance: CLOBAZAM
     Indication: Epilepsy
     Dosage: 10 MG, BID
  10. FOLLITROPIN ALFA [Suspect]
     Active Substance: FOLLITROPIN ALFA
     Indication: Controlled ovarian stimulation
  11. MENOTROPINS [Suspect]
     Active Substance: MENOTROPINS
     Indication: Controlled ovarian stimulation
  12. CORIFOLLITROPIN ALFA [Suspect]
     Active Substance: CORIFOLLITROPIN ALFA
     Indication: Controlled ovarian stimulation
  13. ENANTONE LP [Suspect]
     Active Substance: LEUPROLIDE ACETATE
     Indication: Controlled ovarian stimulation
  14. LAMOTRIGINE [Interacting]
     Active Substance: LAMOTRIGINE
     Indication: Partial seizures
     Dosage: 450 MG, QD
  15. ESTRADIOL [Interacting]
     Active Substance: ESTRADIOL
     Indication: Hormone therapy
     Dosage: 4 MG, FOR 10 DAYS

REACTIONS (6)
  - Generalised tonic-clonic seizure [Recovered/Resolved]
  - Drug interaction [Unknown]
  - Condition aggravated [Recovered/Resolved]
  - Drug ineffective [Unknown]
  - Drug level decreased [Unknown]
  - Blood oestrogen increased [Unknown]

NARRATIVE: CASE EVENT DATE: 20120521
